FAERS Safety Report 9470926 (Version 2)
Quarter: 2013Q3

REPORT INFORMATION
  Report Type: Spontaneous
  Country: US (occurrence: US)
  Receive Date: 20130822
  Receipt Date: 20130822
  Transmission Date: 20140515
  Serious: Yes (Other)
  Sender: FDA-Public Use
  Company Number: US-BAYER-2013-097370

PATIENT
  Age: 45 Year
  Sex: Female

DRUGS (1)
  1. CIPRO [Suspect]
     Indication: AXILLARY MASS
     Dosage: UNK
     Dates: start: 201305

REACTIONS (3)
  - Tendon rupture [None]
  - Tendon disorder [None]
  - Pain [None]
